FAERS Safety Report 18599113 (Version 2)
Quarter: 2020Q4

REPORT INFORMATION
  Report Type: Spontaneous
  Country: US (occurrence: US)
  Receive Date: 20201210
  Receipt Date: 20201216
  Transmission Date: 20210114
  Serious: No
  Sender: FDA-Public Use
  Company Number: US-AMGEN-USASP2020195739

PATIENT
  Age: 69 Year
  Sex: Female

DRUGS (2)
  1. PROLIA [Suspect]
     Active Substance: DENOSUMAB
     Indication: BONE LOSS
     Dosage: 60 MILLIGRAM, Q6MO
     Route: 065
     Dates: start: 2019, end: 202008
  2. ARIMIDEX [Concomitant]
     Active Substance: ANASTROZOLE

REACTIONS (4)
  - Arthralgia [Recovered/Resolved]
  - Hypertension [Unknown]
  - Back pain [Unknown]
  - Pain in extremity [Recovered/Resolved]

NARRATIVE: CASE EVENT DATE: 2020
